FAERS Safety Report 8508202-X (Version None)
Quarter: 2012Q3

REPORT INFORMATION
  Report Type: 
  Country: None (occurrence: None)
  Receive Date: 20120713
  Receipt Date: 20120707
  Transmission Date: 20120928
  Serious: Yes (Life-Threatening, Hospitalization, Other)
  Sender: FDA-Public Use
  Company Number: IS-PFIZER INC-2012163496

PATIENT
  Age: 55 Year
  Sex: Female

DRUGS (1)
  1. INLYTA [Suspect]
     Indication: RENAL CANCER METASTATIC
     Dosage: 5 MG, 2X/DAY
     Route: 048
     Dates: start: 20120626

REACTIONS (4)
  - SUBARACHNOID HAEMORRHAGE [None]
  - INTRACRANIAL ANEURYSM [None]
  - ANEURYSM RUPTURED [None]
  - HAEMORRHAGE INTRACRANIAL [None]
